FAERS Safety Report 4727042-0 (Version None)
Quarter: 2005Q3

REPORT INFORMATION
  Report Type: 
  Country: None (occurrence: None)
  Receive Date: 20050726
  Receipt Date: 20050711
  Transmission Date: 20060218
  Serious: Yes (Other)
  Sender: FDA-Public Use
  Company Number: 200511372BWH

PATIENT

DRUGS (1)
  1. AVELOX [Suspect]

REACTIONS (3)
  - AGITATION [None]
  - DYSKINESIA [None]
  - ENCEPHALOPATHY [None]
